FAERS Safety Report 10164877 (Version 1)
Quarter: 2014Q2

REPORT INFORMATION
  Report Type: Spontaneous
  Country: US (occurrence: US)
  Receive Date: 20140510
  Receipt Date: 20140510
  Transmission Date: 20141212
  Serious: No
  Sender: FDA-Public Use
  Company Number: US-BRISTOL-MYERS SQUIBB COMPANY-20559977

PATIENT
  Age: 70 Year
  Sex: Male
  Weight: 134.5 kg

DRUGS (4)
  1. BYETTA [Suspect]
  2. METFORMIN HCL [Suspect]
  3. LANTUS [Suspect]
  4. NOVORAPID [Suspect]

REACTIONS (1)
  - Hypoglycaemia [Unknown]
